FAERS Safety Report 20863694 (Version 2)
Quarter: 2022Q2

REPORT INFORMATION
  Report Type: Spontaneous
  Country: US (occurrence: US)
  Receive Date: 20220523
  Receipt Date: 20220630
  Transmission Date: 20220721
  Serious: Yes (Hospitalization, Other)
  Sender: FDA-Public Use
  Company Number: US-SANOFI-01108664

PATIENT
  Age: 20 Year
  Sex: Female

DRUGS (1)
  1. DUPIXENT [Suspect]
     Active Substance: DUPILUMAB
     Dosage: 600 MG, 1X
     Dates: start: 20220505, end: 20220505

REACTIONS (4)
  - Anaphylactic reaction [Not Recovered/Not Resolved]
  - Asthma [Not Recovered/Not Resolved]
  - Throat tightness [Not Recovered/Not Resolved]
  - Injection site swelling [Not Recovered/Not Resolved]
